FAERS Safety Report 11231225 (Version 2)
Quarter: 2015Q3

REPORT INFORMATION
  Report Type: Report from Study
  Country: US (occurrence: US)
  Receive Date: 20150701
  Receipt Date: 20150924
  Transmission Date: 20151125
  Serious: Yes (Death)
  Sender: FDA-Public Use
  Company Number: US-009507513-1506USA015152

PATIENT
  Age: 72 Year

DRUGS (2)
  1. BORTEZOMIB [Suspect]
     Active Substance: BORTEZOMIB
     Indication: PLASMA CELL MYELOMA
     Dosage: 2.9 MG, 1X WEEKLY, NO REST PERIOD, EVERY 7 DAYS
     Route: 058
     Dates: start: 20140410, end: 20140523
  2. DEXAMETHASONE. [Suspect]
     Active Substance: DEXAMETHASONE
     Indication: PLASMA CELL MYELOMA
     Dosage: 2 MG, FREQUENCY ON DAYS, 1, 4, 11
     Route: 048
     Dates: start: 20140410, end: 20140523

REACTIONS (1)
  - Plasma cell myeloma [Fatal]

NARRATIVE: CASE EVENT DATE: 20140603
